FAERS Safety Report 5114941-3 (Version None)
Quarter: 2006Q3

REPORT INFORMATION
  Report Type: 
  Country: None (occurrence: None)
  Receive Date: 20060922
  Receipt Date: 20060918
  Transmission Date: 20061208
  Serious: Yes (Hospitalization)
  Sender: FDA-Public Use
  Company Number: 2006SP003317

PATIENT
  Age: 16 Year
  Sex: Female
  Weight: 72.5755 kg

DRUGS (6)
  1. LUNESTA [Suspect]
     Indication: INSOMNIA
     Dosage: 3 MG;1X;ORAL
     Route: 048
     Dates: start: 20060912, end: 20060912
  2. LEXAPRO [Concomitant]
  3. PROVIGIL [Concomitant]
  4. GLUCOPHAGE [Concomitant]
  5. GABITRIL [Concomitant]
  6. LO/OVRAL [Concomitant]

REACTIONS (7)
  - CONVULSION [None]
  - HEART RATE DECREASED [None]
  - HYPOTENSION [None]
  - INCOHERENT [None]
  - LOSS OF CONSCIOUSNESS [None]
  - NAUSEA [None]
  - VOMITING [None]
